FAERS Safety Report 23624355 (Version 1)
Quarter: 2024Q1

REPORT INFORMATION
  Report Type: Report from Study
  Country: BE (occurrence: BE)
  Receive Date: 20240312
  Receipt Date: 20240312
  Transmission Date: 20240410
  Serious: Yes (Hospitalization)
  Sender: FDA-Public Use
  Company Number: BE-JNJFOC-20240314838

PATIENT
  Sex: Male
  Weight: 86 kg

DRUGS (33)
  1. SELEXIPAG [Suspect]
     Active Substance: SELEXIPAG
     Indication: Pulmonary arterial hypertension
     Route: 048
     Dates: start: 20231017
  2. SELEXIPAG [Suspect]
     Active Substance: SELEXIPAG
     Route: 048
     Dates: start: 20231003, end: 20231017
  3. SELEXIPAG [Suspect]
     Active Substance: SELEXIPAG
     Route: 048
     Dates: start: 20230926, end: 20231003
  4. SELEXIPAG [Suspect]
     Active Substance: SELEXIPAG
     Route: 048
     Dates: start: 20230912, end: 20230926
  5. SELEXIPAG [Suspect]
     Active Substance: SELEXIPAG
     Route: 048
     Dates: start: 20230905, end: 20230912
  6. SELEXIPAG [Suspect]
     Active Substance: SELEXIPAG
     Route: 048
     Dates: start: 20230829, end: 20230905
  7. MACITENTAN [Suspect]
     Active Substance: MACITENTAN
     Indication: Pulmonary arterial hypertension
     Route: 048
     Dates: start: 20210419
  8. EPOPROSTENOL SODIUM [Suspect]
     Active Substance: EPOPROSTENOL SODIUM
     Indication: Pulmonary arterial hypertension
     Dosage: TOTAL DAILY DOSE 1
     Route: 042
     Dates: start: 20231010, end: 20231017
  9. EPOPROSTENOL SODIUM [Suspect]
     Active Substance: EPOPROSTENOL SODIUM
     Dosage: TOTAL DAILY DOSE 3.5
     Route: 042
     Dates: start: 20231003, end: 20231010
  10. EPOPROSTENOL SODIUM [Suspect]
     Active Substance: EPOPROSTENOL SODIUM
     Dosage: TOTAL DAILY DOSE 6
     Route: 042
     Dates: start: 20230926, end: 20231003
  11. EPOPROSTENOL SODIUM [Suspect]
     Active Substance: EPOPROSTENOL SODIUM
     Dosage: TOTAL DAILY DOSE 8.5
     Route: 042
     Dates: start: 20230919, end: 20231003
  12. EPOPROSTENOL SODIUM [Suspect]
     Active Substance: EPOPROSTENOL SODIUM
     Dosage: TOTAL DAILY DOSE 11
     Route: 042
     Dates: start: 20230912, end: 20230919
  13. EPOPROSTENOL SODIUM [Suspect]
     Active Substance: EPOPROSTENOL SODIUM
     Dosage: TOTAL DAILY DOSE 13.5
     Route: 042
     Dates: start: 20230905, end: 20230912
  14. EPOPROSTENOL SODIUM [Suspect]
     Active Substance: EPOPROSTENOL SODIUM
     Dosage: TOTAL DAILY DOSE 16
     Route: 042
     Dates: start: 20230830, end: 20230905
  15. EPOPROSTENOL SODIUM [Suspect]
     Active Substance: EPOPROSTENOL SODIUM
     Dosage: TOTAL DAILY DOSE 20
     Route: 042
     Dates: start: 20220503, end: 20230830
  16. EPOPROSTENOL SODIUM [Suspect]
     Active Substance: EPOPROSTENOL SODIUM
     Dosage: TOTAL DAILY DOSE 21
     Route: 042
     Dates: start: 20211019, end: 20220503
  17. EPOPROSTENOL SODIUM [Suspect]
     Active Substance: EPOPROSTENOL SODIUM
     Dosage: TOTAL DAILY DOSE 20.5
     Route: 042
     Dates: start: 20210908, end: 20211019
  18. EPOPROSTENOL SODIUM [Suspect]
     Active Substance: EPOPROSTENOL SODIUM
     Dosage: TOTAL DAILY DOSE 20
     Route: 042
     Dates: start: 20210824, end: 20210908
  19. EPOPROSTENOL SODIUM [Suspect]
     Active Substance: EPOPROSTENOL SODIUM
     Dosage: TOTAL DAILY DOSE 19.5
     Route: 042
     Dates: start: 20210818, end: 20210824
  20. EPOPROSTENOL SODIUM [Suspect]
     Active Substance: EPOPROSTENOL SODIUM
     Dosage: TOTAL DAILY DOSE 19
     Route: 042
     Dates: start: 20210811, end: 20210818
  21. EPOPROSTENOL SODIUM [Suspect]
     Active Substance: EPOPROSTENOL SODIUM
     Dosage: TOTAL DAILY DOSE 18
     Route: 042
     Dates: start: 20210719, end: 20210811
  22. EPOPROSTENOL SODIUM [Suspect]
     Active Substance: EPOPROSTENOL SODIUM
     Dosage: TOTAL DAILY DOSE 17
     Route: 042
     Dates: start: 20210712, end: 20210719
  23. EPOPROSTENOL SODIUM [Suspect]
     Active Substance: EPOPROSTENOL SODIUM
     Dosage: TOTAL DAILY DOSE 16
     Route: 042
     Dates: start: 20210707, end: 20210712
  24. EPOPROSTENOL SODIUM [Suspect]
     Active Substance: EPOPROSTENOL SODIUM
     Dosage: TOTAL DAILY DOSE 15
     Route: 042
     Dates: start: 20210629, end: 20210707
  25. EPOPROSTENOL SODIUM [Suspect]
     Active Substance: EPOPROSTENOL SODIUM
     Dosage: TOTAL DAILY DOSE 14
     Route: 042
     Dates: start: 20210623, end: 20210629
  26. EPOPROSTENOL SODIUM [Suspect]
     Active Substance: EPOPROSTENOL SODIUM
     Dosage: TOTAL DAILY DOSE 13
     Route: 042
     Dates: start: 20210608, end: 20210623
  27. EPOPROSTENOL SODIUM [Suspect]
     Active Substance: EPOPROSTENOL SODIUM
     Dosage: TOTAL DAILY DOSE 12
     Route: 042
     Dates: start: 20210602, end: 20210608
  28. EPOPROSTENOL SODIUM [Suspect]
     Active Substance: EPOPROSTENOL SODIUM
     Dosage: TOTAL DAILY DOSE 11
     Route: 042
     Dates: start: 20210519, end: 20210602
  29. EPOPROSTENOL SODIUM [Suspect]
     Active Substance: EPOPROSTENOL SODIUM
     Dosage: TOTAL DAILY DOSE 10
     Route: 042
     Dates: start: 20210511, end: 20210519
  30. EPOPROSTENOL SODIUM [Suspect]
     Active Substance: EPOPROSTENOL SODIUM
     Dosage: TOTAL DAILY DOSE 9
     Route: 042
     Dates: start: 20210503, end: 20210511
  31. EPOPROSTENOL SODIUM [Suspect]
     Active Substance: EPOPROSTENOL SODIUM
     Dosage: TOTAL DAILY DOSE 9
     Route: 042
     Dates: start: 20210416, end: 20210503
  32. SILDENAFIL [Concomitant]
     Active Substance: SILDENAFIL
     Dosage: TOTAL DAILY DOSE 60
     Route: 048
     Dates: start: 20210525
  33. PERINDOPRIL [Concomitant]
     Active Substance: PERINDOPRIL
     Indication: Hypertension
     Route: 048
     Dates: start: 20180201

REACTIONS (4)
  - Pulmonary arterial hypertension [Recovered/Resolved]
  - Device delivery system issue [Recovered/Resolved]
  - Insomnia [Not Recovered/Not Resolved]
  - Product administration interrupted [Unknown]

NARRATIVE: CASE EVENT DATE: 20230829
